FAERS Safety Report 10024383 (Version 2)
Quarter: 2014Q2

REPORT INFORMATION
  Report Type: Spontaneous
  Country: US (occurrence: None)
  Receive Date: 20140314
  Receipt Date: 20140430
  Transmission Date: 20141212
  Serious: Yes (Other)
  Sender: FDA-Public Use
  Company Number: FK201400763

PATIENT
  Age: 80 Year
  Sex: Female

DRUGS (3)
  1. CISPLATIN [Suspect]
     Indication: PRODUCT USED FOR UNKNOWN INDICATION
  2. PEMETREXED [Suspect]
     Indication: PRODUCT USED FOR UNKNOWN INDICATION
  3. ROLAPITANT (ROLAPITANT) (ROLAPITANT) [Suspect]
     Indication: PROPHYLAXIS OF NAUSEA AND VOMITING

REACTIONS (5)
  - Gastrointestinal haemorrhage [None]
  - Nausea [None]
  - Vomiting [None]
  - Asthenia [None]
  - Dehydration [None]
